FAERS Safety Report 25750282 (Version 1)
Quarter: 2025Q3

REPORT INFORMATION
  Report Type: Spontaneous
  Country: CA (occurrence: CA)
  Receive Date: 20250902
  Receipt Date: 20250902
  Transmission Date: 20251021
  Serious: Yes (Life-Threatening, Hospitalization)
  Sender: MYLAN
  Company Number: CA-MYLANLABS-2025M1074518

PATIENT
  Age: 15 Year
  Sex: Female

DRUGS (24)
  1. PANTOPRAZOLE [Suspect]
     Active Substance: PANTOPRAZOLE
     Indication: Product used for unknown indication
  2. PANTOPRAZOLE [Suspect]
     Active Substance: PANTOPRAZOLE
     Route: 048
  3. PANTOPRAZOLE [Suspect]
     Active Substance: PANTOPRAZOLE
     Route: 048
  4. PANTOPRAZOLE [Suspect]
     Active Substance: PANTOPRAZOLE
  5. ACETYLCYSTEINE [Suspect]
     Active Substance: ACETYLCYSTEINE
     Indication: Toxicity to various agents
  6. ACETYLCYSTEINE [Suspect]
     Active Substance: ACETYLCYSTEINE
     Route: 065
  7. ACETYLCYSTEINE [Suspect]
     Active Substance: ACETYLCYSTEINE
     Route: 065
  8. ACETYLCYSTEINE [Suspect]
     Active Substance: ACETYLCYSTEINE
  9. COLCHICINE [Suspect]
     Active Substance: COLCHICINE
     Indication: Product used for unknown indication
  10. COLCHICINE [Suspect]
     Active Substance: COLCHICINE
  11. COLCHICINE [Suspect]
     Active Substance: COLCHICINE
     Route: 048
  12. COLCHICINE [Suspect]
     Active Substance: COLCHICINE
     Route: 048
  13. COLCHICINE [Suspect]
     Active Substance: COLCHICINE
  14. COLCHICINE [Suspect]
     Active Substance: COLCHICINE
  15. COLCHICINE [Suspect]
     Active Substance: COLCHICINE
     Route: 048
  16. COLCHICINE [Suspect]
     Active Substance: COLCHICINE
     Route: 048
  17. RIFAMPIN [Suspect]
     Active Substance: RIFAMPIN
     Indication: Toxicity to various agents
  18. RIFAMPIN [Suspect]
     Active Substance: RIFAMPIN
     Route: 065
  19. RIFAMPIN [Suspect]
     Active Substance: RIFAMPIN
     Route: 065
  20. RIFAMPIN [Suspect]
     Active Substance: RIFAMPIN
  21. ACTIVATED CHARCOAL [Suspect]
     Active Substance: ACTIVATED CHARCOAL
     Indication: Toxicity to various agents
  22. ACTIVATED CHARCOAL [Suspect]
     Active Substance: ACTIVATED CHARCOAL
     Route: 065
  23. ACTIVATED CHARCOAL [Suspect]
     Active Substance: ACTIVATED CHARCOAL
     Route: 065
  24. ACTIVATED CHARCOAL [Suspect]
     Active Substance: ACTIVATED CHARCOAL

REACTIONS (12)
  - Suicide attempt [Recovering/Resolving]
  - Intentional overdose [Recovering/Resolving]
  - Toxicity to various agents [Recovering/Resolving]
  - Multi-organ disorder [Recovering/Resolving]
  - Drug ineffective [Unknown]
  - Pancytopenia [Recovering/Resolving]
  - Lactic acidosis [Recovered/Resolved]
  - Coagulopathy [Recovered/Resolved]
  - Leukocytosis [Recovering/Resolving]
  - Hypertransaminasaemia [Recovering/Resolving]
  - Abdominal pain [Recovering/Resolving]
  - Vomiting [Recovering/Resolving]
